FAERS Safety Report 5425717-1 (Version None)
Quarter: 2007Q3

REPORT INFORMATION
  Report Type: 
  Country: None (occurrence: None)
  Receive Date: 20070824
  Receipt Date: 20070814
  Transmission Date: 20080115
  Serious: Yes (Hospitalization, Other)
  Sender: FDA-Public Use
  Company Number: US-PFIZER INC-2007069628

PATIENT
  Age: 67 Year
  Sex: Male

DRUGS (3)
  1. NEURONTIN [Suspect]
  2. METOCLOPRAMIDE [Suspect]
  3. RENAGEL [Concomitant]
     Indication: BLOOD PHOSPHORUS

REACTIONS (4)
  - BLOOD URINE PRESENT [None]
  - DRUG TOXICITY [None]
  - INFECTION [None]
  - PARKINSONISM [None]
